FAERS Safety Report 7731099-2 (Version None)
Quarter: 2011Q3

REPORT INFORMATION
  Report Type: 
  Country: None (occurrence: None)
  Receive Date: 20110906
  Receipt Date: 20110906
  Transmission Date: 20111222
  Serious: Yes (Other)
  Sender: FDA-Public Use
  Company Number: None

PATIENT
  Age: 49 Year
  Sex: Female

DRUGS (1)
  1. DEXILANT [Suspect]
     Indication: GASTROOESOPHAGEAL REFLUX DISEASE
     Dosage: 60 MG

REACTIONS (6)
  - INCREASED UPPER AIRWAY SECRETION [None]
  - COUGH [None]
  - TINNITUS [None]
  - CHEST DISCOMFORT [None]
  - CHOKING [None]
  - ASTHMA [None]
